FAERS Safety Report 6490250-5 (Version None)
Quarter: 2009Q4

REPORT INFORMATION
  Report Type: 
  Country: None (occurrence: None)
  Receive Date: 20091211
  Receipt Date: 20091116
  Transmission Date: 20100525
  Serious: No
  Sender: FDA-Public Use
  Company Number: US-ROCHE-669646

PATIENT
  Age: 45 Year
  Sex: Female

DRUGS (2)
  1. TAMIFLU [Suspect]
     Route: 048
     Dates: start: 20091116
  2. ZITHROMAX [Concomitant]
     Dosage: ZITHROMAX ANTIBIOTIC

REACTIONS (1)
  - INCORRECT DOSE ADMINISTERED [None]
